FAERS Safety Report 14533747 (Version 2)
Quarter: 2018Q2

REPORT INFORMATION
  Report Type: Spontaneous
  Country: US (occurrence: US)
  Receive Date: 20180215
  Receipt Date: 20180510
  Transmission Date: 20180711
  Serious: Yes (Other)
  Sender: FDA-Public Use
  Company Number: US-ROCHE-2073230

PATIENT
  Age: 37 Year
  Sex: Female
  Weight: 59.29 kg

DRUGS (22)
  1. ELMIRON [Concomitant]
     Active Substance: PENTOSAN POLYSULFATE SODIUM
     Indication: CYSTITIS
     Route: 048
     Dates: start: 20160607
  2. PROMETHAZINE [Concomitant]
     Active Substance: PROMETHAZINE\PROMETHAZINE HYDROCHLORIDE
     Indication: MOTION SICKNESS
     Route: 048
  3. NEURONTIN [Concomitant]
     Active Substance: GABAPENTIN
     Indication: SEIZURE
     Dosage: EVERY NIGHT AT BEDTIME
     Route: 048
  4. IMIPRAMINE HCL [Concomitant]
     Active Substance: IMIPRAMINE HYDROCHLORIDE
     Route: 048
  5. MAXALT-MLT [Concomitant]
     Active Substance: RIZATRIPTAN BENZOATE
     Indication: MIGRAINE
     Route: 048
     Dates: start: 20160607
  6. SODIUM SULFACETAMIDE [Concomitant]
     Active Substance: SULFACETAMIDE SODIUM
     Route: 065
  7. BACLOFEN. [Concomitant]
     Active Substance: BACLOFEN
     Route: 048
     Dates: start: 20160825
  8. VYVANSE [Concomitant]
     Active Substance: LISDEXAMFETAMINE DIMESYLATE
     Indication: ATTENTION DEFICIT/HYPERACTIVITY DISORDER
     Route: 048
  9. DIFLUCAN [Concomitant]
     Active Substance: FLUCONAZOLE
     Indication: FUNGAL INFECTION
     Route: 048
     Dates: start: 20170403
  10. VALIUM [Suspect]
     Active Substance: DIAZEPAM
     Indication: PAIN
  11. SOLU-MEDROL [Concomitant]
     Active Substance: METHYLPREDNISOLONE SODIUM SUCCINATE
     Indication: MULTIPLE SCLEROSIS RELAPSE
     Dosage: AS NEEDED
     Route: 042
  12. VALIUM [Suspect]
     Active Substance: DIAZEPAM
     Indication: ANXIETY
     Route: 048
     Dates: start: 20170104
  13. VITAMIN B COMPLEX [Concomitant]
     Active Substance: CYANOCOBALAMIN\DEXPANTHENOL\NIACINAMIDE\PYRIDOXINE HYDROCHLORIDE\RIBOFLAVIN 5^-PHOSPHATE SODIUM\THIAMINE HYDROCHLORIDE\VITAMIN B COMPLEX
     Indication: MULTIPLE SCLEROSIS
     Route: 048
     Dates: start: 20160607
  14. HYDROXYZINE [Concomitant]
     Active Substance: HYDROXYZINE HYDROCHLORIDE
     Dosage: TID-QD
     Route: 048
     Dates: start: 20160607
  15. OMEPRAZOLE. [Concomitant]
     Active Substance: OMEPRAZOLE
     Indication: GASTROOESOPHAGEAL REFLUX DISEASE
     Route: 048
  16. LEXAPRO [Concomitant]
     Active Substance: ESCITALOPRAM OXALATE
     Indication: DEPRESSION
     Route: 048
     Dates: start: 20161103
  17. DOXYCYCLINE. [Concomitant]
     Active Substance: DOXYCYCLINE
     Route: 048
     Dates: start: 20170403
  18. FISH OIL [Concomitant]
     Active Substance: FISH OIL
     Route: 048
  19. SONATA (UNITED STATES) [Concomitant]
     Route: 048
  20. SYNTHROID [Concomitant]
     Active Substance: LEVOTHYROXINE SODIUM
     Indication: HYPOTHYROIDISM
     Route: 048
     Dates: start: 20160607
  21. OCREVUS [Suspect]
     Active Substance: OCRELIZUMAB
     Indication: PRODUCT USED FOR UNKNOWN INDICATION
     Dosage: ONGOING: UNKNOWN
     Route: 042
     Dates: start: 20170628, end: 20180213
  22. OCREVUS [Suspect]
     Active Substance: OCRELIZUMAB
     Route: 042

REACTIONS (66)
  - Deafness [Recovered/Resolved]
  - Ear infection [Unknown]
  - Oropharyngeal pain [Unknown]
  - Hypersensitivity [Unknown]
  - Heart rate irregular [Unknown]
  - Vision blurred [Unknown]
  - Memory impairment [Unknown]
  - Cognitive disorder [Unknown]
  - Appendicitis [Recovered/Resolved]
  - Chest pain [Unknown]
  - Hair disorder [Unknown]
  - Melanocytic naevus [Unknown]
  - Anaemia [Unknown]
  - Anaphylactic reaction [Unknown]
  - Multiple sclerosis relapse [Unknown]
  - Nasal congestion [Unknown]
  - Fungal infection [Unknown]
  - Diarrhoea [Unknown]
  - Hypoaesthesia [Unknown]
  - Rhinorrhoea [Unknown]
  - Dysphagia [Unknown]
  - Gastrointestinal disorder [Unknown]
  - Aphthous ulcer [Unknown]
  - Migraine [Unknown]
  - Ulcer [Unknown]
  - Sinusitis [Unknown]
  - Eye pain [Unknown]
  - Abdominal infection [Unknown]
  - Temperature intolerance [Unknown]
  - Clumsiness [Unknown]
  - Impaired healing [Unknown]
  - Arthralgia [Unknown]
  - Lymphocyte count decreased [Unknown]
  - Epistaxis [Unknown]
  - Painful respiration [Unknown]
  - Productive cough [Unknown]
  - Weight abnormal [Unknown]
  - Pollakiuria [Unknown]
  - Peripheral swelling [Unknown]
  - Vulvovaginal mycotic infection [Unknown]
  - Seizure [Unknown]
  - Balance disorder [Unknown]
  - Dysphonia [Unknown]
  - Dyspepsia [Unknown]
  - Insomnia [Unknown]
  - Neuralgia [Unknown]
  - Nausea [Unknown]
  - Dysuria [Unknown]
  - Weight decreased [Unknown]
  - White blood cell count decreased [Unknown]
  - Neutrophil count abnormal [Unknown]
  - Foot fracture [Unknown]
  - Ear pain [Unknown]
  - Cellulitis [Recovered/Resolved]
  - Tinnitus [Unknown]
  - Dizziness [Unknown]
  - Dyspnoea [Unknown]
  - Wheezing [Unknown]
  - Heart rate increased [Unknown]
  - Decreased appetite [Unknown]
  - Lymphadenopathy [Unknown]
  - Pain [Unknown]
  - Rash pustular [Unknown]
  - Muscle spasms [Unknown]
  - Increased tendency to bruise [Unknown]
  - Auditory disorder [Unknown]

NARRATIVE: CASE EVENT DATE: 20170625
